FAERS Safety Report 8822260 (Version 1)
Quarter: 2012Q4

REPORT INFORMATION
  Report Type: 
  Country: FR (occurrence: FR)
  Receive Date: 20121003
  Receipt Date: 20121003
  Transmission Date: 20130627
  Serious: Yes (Hospitalization, Other)
  Sender: FDA-Public Use
  Company Number: PHHY2012FR084961

PATIENT
  Age: 88 Year
  Sex: Female

DRUGS (12)
  1. FEMARA [Suspect]
     Indication: BREAST CANCER
     Dosage: UNK UKN, UNK
     Route: 048
     Dates: start: 200802, end: 200805
  2. FEMARA [Suspect]
     Dosage: UNK UKN, UNK
     Route: 048
     Dates: start: 20120714, end: 20120718
  3. DIAMOX [Concomitant]
     Dosage: 250 mg, QD
     Dates: start: 201206
  4. CORTANCYL [Concomitant]
     Dosage: 20 mg, BID
     Dates: start: 201206
  5. ESOMEPRAZOLE [Concomitant]
     Dosage: 40 mg, QD
     Dates: start: 201206
  6. PLAVIX [Concomitant]
     Dosage: 75 mg, QD
     Dates: start: 2003, end: 20120706
  7. KARDEGIC [Concomitant]
     Dosage: 75 mg, QD
     Dates: start: 20120529
  8. TAHOR [Concomitant]
     Dosage: 20 mg, QD
     Dates: start: 2003
  9. CARDENSIEL [Concomitant]
     Dosage: 2.5 mg, QD
     Dates: start: 2003
  10. TRINIPATCH [Concomitant]
     Dosage: 10 mg per 24 hours
     Dates: start: 201205, end: 20120706
  11. APROVEL [Concomitant]
     Dosage: 75 mg, QD
     Dates: start: 201205
  12. AMLOR [Concomitant]
     Dosage: 5 mg, BID
     Dates: start: 201205

REACTIONS (5)
  - Pruritus [Recovered/Resolved]
  - Fall [Unknown]
  - Cerebellar tumour [Unknown]
  - Rash erythematous [Recovered/Resolved]
  - Acute coronary syndrome [Unknown]
